FAERS Safety Report 11123677 (Version 5)
Quarter: 2016Q3

REPORT INFORMATION
  Report Type: Report from Study
  Country: ES (occurrence: ES)
  Receive Date: 20150519
  Receipt Date: 20160901
  Transmission Date: 20161109
  Serious: Yes (Other)
  Sender: FDA-Public Use
  Company Number: PHHY2015ES056752

PATIENT
  Age: 8 Year
  Sex: Male

DRUGS (4)
  1. VOTUBIA [Suspect]
     Active Substance: EVEROLIMUS
     Dosage: 5 MG, QD
     Route: 048
     Dates: start: 20150207
  2. LACOSAMIDA [Concomitant]
     Indication: EPILEPSY
     Dosage: 100 MG, Q12H
     Route: 065
  3. VIGABATRINA [Concomitant]
     Indication: EPILEPSY
     Dosage: 500 MG, Q12H
     Route: 065
  4. VOTUBIA [Suspect]
     Active Substance: EVEROLIMUS
     Indication: TUBEROUS SCLEROSIS
     Dosage: 5 MG, QD
     Route: 048
     Dates: start: 20140806, end: 20150205

REACTIONS (6)
  - Constipation [Unknown]
  - Gingivitis [Recovered/Resolved]
  - Cough [Unknown]
  - Stomatitis [Recovered/Resolved]
  - Aphthous ulcer [Unknown]
  - Dental caries [Recovered/Resolved]

NARRATIVE: CASE EVENT DATE: 20141105
